FAERS Safety Report 7810408-X (Version None)
Quarter: 2011Q4

REPORT INFORMATION
  Report Type: 
  Country: None (occurrence: None)
  Receive Date: 20111012
  Receipt Date: 20111004
  Transmission Date: 20120403
  Serious: Yes (Hospitalization)
  Sender: FDA-Public Use
  Company Number: US-ASTRAZENECA-2011SE59696

PATIENT
  Age: 37 Year
  Sex: Male

DRUGS (1)
  1. TOPROL-XL [Suspect]
     Route: 048

REACTIONS (5)
  - CHEST PAIN [None]
  - HYPERTENSION [None]
  - ATRIAL FIBRILLATION [None]
  - DRUG DOSE OMISSION [None]
  - HEADACHE [None]
